FAERS Safety Report 6402286-0 (Version None)
Quarter: 2009Q4

REPORT INFORMATION
  Report Type: 
  Country: None (occurrence: None)
  Receive Date: 20091015
  Receipt Date: 20091005
  Transmission Date: 20100525
  Serious: Yes (Other)
  Sender: FDA-Public Use
  Company Number: PHEH2009US04544

PATIENT
  Sex: Male
  Weight: 62.2 kg

DRUGS (3)
  1. EXJADE [Suspect]
     Indication: LYMPHOPROLIFERATIVE DISORDER
     Dosage: 1000 MG, QD
     Route: 048
     Dates: start: 20060216, end: 20090204
  2. EXJADE [Suspect]
     Dosage: 500 MG, QD
     Route: 048
     Dates: end: 20090101
  3. EXJADE [Suspect]
     Dosage: 250 MG TO 1500 MG DAILY

REACTIONS (10)
  - COLITIS [None]
  - DECREASED APPETITE [None]
  - DIARRHOEA [None]
  - DYSPEPSIA [None]
  - GASTRITIS [None]
  - INFLAMMATORY BOWEL DISEASE [None]
  - NAUSEA [None]
  - TREATMENT NONCOMPLIANCE [None]
  - VOMITING [None]
  - WEIGHT DECREASED [None]
